FAERS Safety Report 5318559-9 (Version None)
Quarter: 2007Q2

REPORT INFORMATION
  Report Type: 
  Country: None (occurrence: None)
  Receive Date: 20070508
  Receipt Date: 20070316
  Transmission Date: 20071010
  Serious: Yes (Hospitalization)
  Sender: FDA-Public Use
  Company Number: AU-RB-006186-07

PATIENT
  Age: 24 Year
  Sex: Female

DRUGS (2)
  1. BUPRENORPHINE HCL [Suspect]
     Indication: DRUG DETOXIFICATION
     Route: 060
     Dates: start: 20040901, end: 20040901
  2. BUPRENORPHINE HCL [Suspect]
     Route: 060
     Dates: start: 20040901, end: 20040901

REACTIONS (1)
  - IMPAIRED GASTRIC EMPTYING [None]
